FAERS Safety Report 6772836-3 (Version None)
Quarter: 2010Q2

REPORT INFORMATION
  Report Type: 
  Country: None (occurrence: None)
  Receive Date: 20100616
  Receipt Date: 20100528
  Transmission Date: 20101027
  Serious: Yes (Other)
  Sender: FDA-Public Use
  Company Number: PE-SANOFI-AVENTIS-2010SA031997

PATIENT
  Age: 84 Year
  Sex: Female

DRUGS (2)
  1. PLAVIX [Suspect]
     Route: 048
     Dates: start: 20090701
  2. LOSARTAN POTASSIUM [Concomitant]
     Dosage: 100 (NOS)
     Route: 048

REACTIONS (6)
  - ERYTHEMA [None]
  - FACE OEDEMA [None]
  - FLUSHING [None]
  - OEDEMA PERIPHERAL [None]
  - PAIN IN EXTREMITY [None]
  - PURPURA [None]
